FAERS Safety Report 6091004-4 (Version None)
Quarter: 2009Q1

REPORT INFORMATION
  Report Type: 
  Country: None (occurrence: None)
  Receive Date: 20090219
  Receipt Date: 20090219
  Transmission Date: 20090719
  Serious: Yes (Hospitalization)
  Sender: FDA-Public Use
  Company Number: None

PATIENT
  Sex: Female
  Weight: 65.7716 kg

DRUGS (1)
  1. PAXIL [Suspect]
     Indication: DEPRESSION
     Dosage: 10 MG 1 X DAY ORAL
     Route: 048
     Dates: start: 20070101

REACTIONS (12)
  - ABASIA [None]
  - APHASIA [None]
  - ASTHENIA [None]
  - DIZZINESS [None]
  - DYSARTHRIA [None]
  - GAIT DISTURBANCE [None]
  - HYPOAESTHESIA [None]
  - HYPOAESTHESIA ORAL [None]
  - HYPOPHAGIA [None]
  - PHARYNGEAL HYPOAESTHESIA [None]
  - PRURITUS [None]
  - VISION BLURRED [None]
